FAERS Safety Report 18513064 (Version 2)
Quarter: 2021Q1

REPORT INFORMATION
  Report Type: Spontaneous
  Country: US (occurrence: US)
  Receive Date: 20201117
  Receipt Date: 20210226
  Transmission Date: 20210419
  Serious: Yes (Other)
  Sender: FDA-Public Use
  Company Number: US-MALLINCKRODT-T202005268

PATIENT
  Age: 73 Year
  Sex: Female
  Weight: 59 kg

DRUGS (2)
  1. H.P. ACTHAR [Suspect]
     Active Substance: CORTICOTROPIN
     Dosage: 1 MILLILITER, TWO TIMES EVERY WEEK
     Route: 030
  2. H.P. ACTHAR [Suspect]
     Active Substance: CORTICOTROPIN
     Indication: RHEUMATOID ARTHRITIS
     Dosage: 80 UNITS/1 MILLILITER, TWICE A WEEK
     Route: 058
     Dates: start: 201805, end: 2020

REACTIONS (8)
  - Sinusitis [Unknown]
  - Product dose omission issue [Unknown]
  - Limb discomfort [Unknown]
  - Pneumonia [Unknown]
  - Arthralgia [Unknown]
  - Inflammation [Unknown]
  - Bronchiectasis [Unknown]
  - Respiratory tract infection [Unknown]

NARRATIVE: CASE EVENT DATE: 20210208
